FAERS Safety Report 5844972-7 (Version None)
Quarter: 2008Q3

REPORT INFORMATION
  Report Type: 
  Country: None (occurrence: None)
  Receive Date: 20080814
  Receipt Date: 20080806
  Transmission Date: 20090109
  Serious: Yes (Hospitalization)
  Sender: FDA-Public Use
  Company Number: JP-ASTRAZENECA-2008AP05591

PATIENT
  Age: 59 Year
  Sex: Male

DRUGS (6)
  1. FOSCAVIR [Suspect]
     Indication: CYTOMEGALOVIRUS INFECTION
     Route: 041
     Dates: start: 20080705, end: 20080718
  2. LASIX [Suspect]
     Indication: OEDEMA
     Route: 065
     Dates: start: 20080707, end: 20080718
  3. LASIX [Suspect]
     Route: 065
     Dates: start: 20080719, end: 20080722
  4. PANSPORIN [Suspect]
     Indication: BACTERIAL INFECTION
     Route: 065
     Dates: start: 20080715, end: 20080717
  5. FUNGUARD [Suspect]
     Indication: FUNGAL INFECTION
     Route: 041
     Dates: start: 20080716, end: 20080717
  6. COTRIM [Suspect]
     Indication: BACTERIAL INFECTION
     Route: 048
     Dates: end: 20080719

REACTIONS (2)
  - DRUG ERUPTION [None]
  - ERYTHEMA [None]
